FAERS Safety Report 5724899-1 (Version None)
Quarter: 2008Q2

REPORT INFORMATION
  Report Type: 
  Country: None (occurrence: None)
  Receive Date: 20080430
  Receipt Date: 20080430
  Transmission Date: 20081010
  Serious: No
  Sender: FDA-Public Use
  Company Number: None

PATIENT
  Age: 48 Year
  Sex: Male
  Weight: 127.4608 kg

DRUGS (1)
  1. LYRICA [Suspect]
     Indication: BONE PAIN
     Dosage: ONE CAPSULE AT BEDTIME PO
     Route: 048

REACTIONS (2)
  - MIDDLE INSOMNIA [None]
  - NIGHTMARE [None]
